FAERS Safety Report 10136766 (Version 1)
Quarter: 2014Q2

REPORT INFORMATION
  Report Type: Spontaneous
  Country: US (occurrence: US)
  Receive Date: 20140429
  Receipt Date: 20140429
  Transmission Date: 20141212
  Serious: No
  Sender: FDA-Public Use
  Company Number: US-MYLANLABS-2013S1007110

PATIENT
  Sex: Female

DRUGS (2)
  1. IPRATROPIUM BROMIDE AND ALBUTEROL SULFATE INHALATION SOLUTION [Suspect]
     Indication: ASTHMA
     Dosage: 4-6 TIMES A DAY
     Route: 055
     Dates: start: 201303
  2. IPRATROPIUM BROMIDE AND ALBUTEROL SULFATE INHALATION SOLUTION [Suspect]
     Indication: OFF LABEL USE
     Dosage: 4-6 TIMES A DAY
     Route: 055
     Dates: start: 201303

REACTIONS (2)
  - Drug ineffective for unapproved indication [Not Recovered/Not Resolved]
  - Asthma [Not Recovered/Not Resolved]
